FAERS Safety Report 25576320 (Version 2)
Quarter: 2025Q3

REPORT INFORMATION
  Report Type: Spontaneous
  Country: EU (occurrence: EU)
  Receive Date: 20250718
  Receipt Date: 20250805
  Transmission Date: 20251021
  Serious: Yes (Life-Threatening, Other)
  Sender: AUROBINDO
  Company Number: EU-PFIZER INC-202500135171

PATIENT
  Age: 71 Year
  Sex: Male
  Weight: 74 kg

DRUGS (7)
  1. VORICONAZOLE [Interacting]
     Active Substance: VORICONAZOLE
     Indication: Bronchopulmonary aspergillosis
     Dosage: 888 MILLIGRAM, ONCE A DAY
     Route: 042
  2. VORICONAZOLE [Interacting]
     Active Substance: VORICONAZOLE
     Dosage: 592 MILLIGRAM, ONCE A DAY (
     Route: 042
  3. VORICONAZOLE [Interacting]
     Active Substance: VORICONAZOLE
     Dosage: 200 MILLIGRAM, TWO TIMES A DAY
     Route: 042
  4. NIRMATRELVIR\RITONAVIR [Interacting]
     Active Substance: NIRMATRELVIR\RITONAVIR
     Indication: COVID-19 treatment
     Route: 065
  5. PIPERACILLIN SODIUM\TAZOBACTAM SODIUM [Concomitant]
     Active Substance: PIPERACILLIN SODIUM\TAZOBACTAM SODIUM
     Indication: Product used for unknown indication
     Route: 065
  6. DEXAMETHASONE [Concomitant]
     Active Substance: DEXAMETHASONE
     Indication: Product used for unknown indication
     Route: 065
  7. VANCOMYCIN [Concomitant]
     Active Substance: VANCOMYCIN
     Indication: Bacterial infection
     Route: 065

REACTIONS (4)
  - Drug interaction [Unknown]
  - Hypertransaminasaemia [Unknown]
  - Drug level above therapeutic [Recovered/Resolved]
  - Off label use [Unknown]
